FAERS Safety Report 21088918 (Version 3)
Quarter: 2023Q1

REPORT INFORMATION
  Report Type: Spontaneous
  Country: US (occurrence: US)
  Receive Date: 20220715
  Receipt Date: 20230321
  Transmission Date: 20230418
  Serious: No
  Sender: FDA-Public Use
  Company Number: US-LUPIN PHARMACEUTICALS INC.-2022-09412

PATIENT

DRUGS (1)
  1. ALBUTEROL SULFATE [Suspect]
     Active Substance: ALBUTEROL SULFATE
     Indication: Product used for unknown indication
     Dosage: UNK, PRN ( EVERY MORNING)
     Route: 065

REACTIONS (4)
  - Illness [Unknown]
  - Device delivery system issue [Unknown]
  - Device deposit issue [Unknown]
  - Poor quality product administered [Unknown]
